FAERS Safety Report 7378564-8 (Version None)
Quarter: 2011Q1

REPORT INFORMATION
  Report Type: 
  Country: None (occurrence: None)
  Receive Date: 20110328
  Receipt Date: 20110322
  Transmission Date: 20110831
  Serious: Yes (Other)
  Sender: FDA-Public Use
  Company Number: US-PFIZER INC-2011045683

PATIENT
  Sex: Male
  Weight: 64 kg

DRUGS (9)
  1. XYNTHA [Suspect]
     Dosage: 1500-3000 IU
     Dates: start: 20110118
  2. XYNTHA [Suspect]
     Indication: FACTOR VIII DEFICIENCY
     Dosage: 1500-3000 IU
     Dates: start: 20110106
  3. XYNTHA [Suspect]
     Dosage: AS NEEDED
     Route: 042
     Dates: start: 20100315
  4. XYNTHA [Suspect]
     Dosage: 1500-3000 IU
     Dates: start: 20110223
  5. XYNTHA [Suspect]
     Indication: PROPHYLAXIS
     Dosage: 1500-3000 IU
     Dates: start: 20110110
  6. XYNTHA [Suspect]
     Dosage: 1500-3000 IU
     Dates: start: 20110112
  7. XYNTHA [Suspect]
     Dosage: 1500-3000 IU
     Dates: start: 20110114
  8. XYNTHA [Suspect]
     Dosage: 1500-3000 IU
     Dates: start: 20110116
  9. XYNTHA [Suspect]
     Dosage: 1500-3000 IU
     Dates: start: 20110222

REACTIONS (1)
  - FACTOR VIII INHIBITION [None]
